FAERS Safety Report 20597787 (Version 1)
Quarter: 2022Q1

REPORT INFORMATION
  Report Type: Spontaneous
  Country: US (occurrence: None)
  Receive Date: 20220315
  Receipt Date: 20220315
  Transmission Date: 20220424
  Serious: Yes (Hospitalization)
  Sender: FDA-Public Use
  Company Number: None

PATIENT
  Age: 41 Year
  Sex: Female
  Weight: 109.6 kg

DRUGS (7)
  1. FERAHEME [Suspect]
     Active Substance: FERUMOXYTOL NON-STOICHIOMETRIC MAGNETITE
     Indication: Iron deficiency anaemia
     Dosage: FREQUENCY : ONCE;?
     Route: 041
     Dates: start: 20220309, end: 20220309
  2. Cholecalciferol 1,250mcg once weekly [Concomitant]
  3. levothyroxine 200mcg once daily [Concomitant]
  4. Azelastine 137mcg as directed [Concomitant]
  5. cyclobenzaprine 10mg once daily [Concomitant]
  6. Claritin 10mg once daily [Concomitant]
  7. Meclizine 25mg once daily [Concomitant]

REACTIONS (7)
  - Nausea [None]
  - Unresponsive to stimuli [None]
  - Oxygen saturation decreased [None]
  - Back pain [None]
  - Neck pain [None]
  - Back pain [None]
  - Wheezing [None]

NARRATIVE: CASE EVENT DATE: 20220309
